FAERS Safety Report 20541988 (Version 7)
Quarter: 2025Q3

REPORT INFORMATION
  Report Type: Report from Study
  Country: CA (occurrence: CA)
  Receive Date: 20220302
  Receipt Date: 20250915
  Transmission Date: 20251021
  Serious: Yes (Other)
  Sender: TAKEDA
  Company Number: CA-TAKEDA-2022TUS013862

PATIENT
  Age: 54 Year
  Sex: Female

DRUGS (3)
  1. VEDOLIZUMAB [Suspect]
     Active Substance: VEDOLIZUMAB
     Indication: Crohn^s disease
  2. VEDOLIZUMAB [Suspect]
     Active Substance: VEDOLIZUMAB
  3. PREDNISONE [Concomitant]
     Active Substance: PREDNISONE

REACTIONS (10)
  - Crohn^s disease [Recovered/Resolved]
  - Stress [Unknown]
  - Faecal volume decreased [Unknown]
  - Faeces hard [Unknown]
  - Diarrhoea [Unknown]
  - Ear pain [Recovering/Resolving]
  - Abdominal pain [Unknown]
  - Abdominal distension [Unknown]
  - Flatulence [Unknown]
  - Nasopharyngitis [Recovered/Resolved]

NARRATIVE: CASE EVENT DATE: 20220911
